FAERS Safety Report 9169855 (Version 1)
Quarter: 2013Q1

REPORT INFORMATION
  Report Type: Spontaneous
  Country: TR (occurrence: TR)
  Receive Date: 20130319
  Receipt Date: 20130319
  Transmission Date: 20140127
  Serious: Yes (Other)
  Sender: FDA-Public Use
  Company Number: TR-PAR PHARMACEUTICAL, INC-2013SCPR005824

PATIENT
  Sex: 0

DRUGS (5)
  1. LEVETIRACETAM [Suspect]
     Indication: EPILEPSY
     Dosage: 500 MG, QD
     Route: 065
  2. LEVETIRACETAM [Suspect]
     Dosage: 2000 MG, QD
     Route: 065
  3. LEVETIRACETAM [Suspect]
     Dosage: 1000 MG, QD
     Route: 065
  4. CARBAMAZEPINE [Concomitant]
     Indication: EPILEPSY
     Dosage: 1000 MG, QD
     Route: 065
  5. CARBAMAZEPINE [Concomitant]
     Dosage: 800 MG, QD
     Route: 065

REACTIONS (1)
  - Hypersexuality [Recovered/Resolved]
